FAERS Safety Report 10067109 (Version 1)
Quarter: 2014Q2

REPORT INFORMATION
  Report Type: Spontaneous
  Country: US (occurrence: US)
  Receive Date: 20140409
  Receipt Date: 20140409
  Transmission Date: 20141212
  Serious: Yes (Hospitalization)
  Sender: FDA-Public Use
  Company Number: US-009507513-1404USA002094

PATIENT
  Age: 63 Year
  Sex: Male

DRUGS (5)
  1. ZOCOR [Suspect]
     Indication: TYPE 2 DIABETES MELLITUS
     Dosage: 20 MG DAILY
     Route: 048
  2. METHYLPREDNISOLONE [Concomitant]
     Dosage: 16 MG DAILY
  3. METHYLPREDNISOLONE [Concomitant]
     Dosage: 8 MG DAILY
  4. METHYLPREDNISOLONE [Concomitant]
     Dosage: 16 MG DAILY
  5. PREDNISONE [Concomitant]
     Dosage: 60 MG DAILY

REACTIONS (1)
  - Immune-mediated necrotising myopathy [Unknown]
